FAERS Safety Report 9968009 (Version 1)
Quarter: 2014Q1

REPORT INFORMATION
  Report Type: Spontaneous
  Country: US (occurrence: US)
  Receive Date: 20140306
  Receipt Date: 20140306
  Transmission Date: 20141002
  Serious: No
  Sender: FDA-Public Use
  Company Number: US-ABBVIE-13P-163-1143785-00

PATIENT
  Age: 25 Year
  Sex: Female
  Weight: 60.38 kg

DRUGS (5)
  1. HUMIRA [Suspect]
     Indication: COLITIS ULCERATIVE
     Dosage: INITIAL DOSE
     Dates: start: 20130515, end: 20130515
  2. HUMIRA [Suspect]
     Dosage: ON DAY 15
     Dates: start: 20130530, end: 20130530
  3. HUMIRA [Suspect]
     Dates: start: 20130614, end: 20130827
  4. 6-MP [Concomitant]
     Indication: COLITIS ULCERATIVE
  5. AZULFIDINE [Concomitant]
     Indication: COLITIS ULCERATIVE

REACTIONS (5)
  - Arthralgia [Recovered/Resolved]
  - Injection site swelling [Recovered/Resolved]
  - Injection site erythema [Recovered/Resolved]
  - Neck pain [Recovered/Resolved]
  - Arthralgia [Recovered/Resolved]
